FAERS Safety Report 21437571 (Version 1)
Quarter: 2022Q4

REPORT INFORMATION
  Report Type: Spontaneous
  Country: GB (occurrence: GB)
  Receive Date: 20221011
  Receipt Date: 20221011
  Transmission Date: 20230113
  Serious: Yes (Life-Threatening, Hospitalization, Other)
  Sender: FDA-Public Use
  Company Number: GB-MHRA-MED-202210081336179420-VKSJT

PATIENT
  Age: 88 Year
  Weight: 67 kg

DRUGS (2)
  1. VENETOCLAX [Suspect]
     Active Substance: VENETOCLAX
     Indication: Chronic lymphocytic leukaemia
     Dosage: BEGAN ON 50 AND MOVED UP TO 100
  2. AMLODIPINE [Concomitant]
     Active Substance: AMLODIPINE BESYLATE
     Indication: Hypertension

REACTIONS (5)
  - Product prescribing error [Unknown]
  - Balance disorder [Recovered/Resolved]
  - Fall [Unknown]
  - General physical health deterioration [Unknown]
  - Cerebral thrombosis [Unknown]
